FAERS Safety Report 11789926 (Version 3)
Quarter: 2017Q1

REPORT INFORMATION
  Report Type: Spontaneous
  Country: US (occurrence: US)
  Receive Date: 20151201
  Receipt Date: 20170224
  Transmission Date: 20170428
  Serious: Yes (Death, Other)
  Sender: FDA-Public Use
  Company Number: US-ASTELLAS-2015US044659

PATIENT
  Age: 92 Year
  Sex: Male

DRUGS (1)
  1. XTANDI [Suspect]
     Active Substance: ENZALUTAMIDE
     Indication: HORMONE-REFRACTORY PROSTATE CANCER
     Route: 048

REACTIONS (6)
  - Malignant neoplasm progression [Fatal]
  - Vomiting [Unknown]
  - Diarrhoea [Unknown]
  - Head injury [Unknown]
  - Fall [Unknown]
  - Eye contusion [Unknown]

NARRATIVE: CASE EVENT DATE: 201511
